FAERS Safety Report 12305659 (Version 1)
Quarter: 2016Q2

REPORT INFORMATION
  Report Type: Spontaneous
  Country: US (occurrence: US)
  Receive Date: 20160426
  Receipt Date: 20160426
  Transmission Date: 20160815
  Serious: Yes (Other)
  Sender: FDA-Public Use
  Company Number: US-PFIZER INC-2016221540

PATIENT
  Age: 55 Year
  Sex: Female

DRUGS (3)
  1. NEURONTIN [Suspect]
     Active Substance: GABAPENTIN
     Indication: POST HERPETIC NEURALGIA
     Dosage: UNK
     Route: 048
     Dates: start: 1998
  2. EFFEXOR [Concomitant]
     Active Substance: VENLAFAXINE HYDROCHLORIDE
     Indication: DEPRESSION
     Dosage: 150 MG, 1X/DAY
  3. NEURONTIN [Suspect]
     Active Substance: GABAPENTIN
     Dosage: 600MG TWO TABLETS THREE TIMES A DAY
     Route: 048
     Dates: end: 2005

REACTIONS (8)
  - Weight increased [Recovered/Resolved]
  - Pulmonary thrombosis [Unknown]
  - Increased appetite [Recovered/Resolved]
  - Blood disorder [Unknown]
  - Thrombosis [Unknown]
  - Somnolence [Recovered/Resolved]
  - Pain [Unknown]
  - Platelet disorder [Unknown]

NARRATIVE: CASE EVENT DATE: 1998
